FAERS Safety Report 21478386 (Version 1)
Quarter: 2022Q4

REPORT INFORMATION
  Report Type: Spontaneous
  Country: IT (occurrence: IT)
  Receive Date: 20221019
  Receipt Date: 20221019
  Transmission Date: 20230113
  Serious: Yes (Other)
  Sender: FDA-Public Use
  Company Number: IT-TAKEDA-2022TUS073144

PATIENT
  Sex: Female

DRUGS (5)
  1. PANTOPRAZOLE SODIUM [Suspect]
     Active Substance: PANTOPRAZOLE SODIUM
     Indication: Gastric disorder
     Dosage: UNK
     Route: 065
  2. HYDROCORTISONE [Suspect]
     Active Substance: HYDROCORTISONE
     Indication: Adrenal insufficiency
     Dosage: 5 MILLIGRAM
     Route: 065
     Dates: start: 20221002, end: 20221004
  3. LIXIDOL [TRAMADOL HYDROCHLORIDE] [Concomitant]
     Dosage: UNK
  4. TORADOL [Concomitant]
     Active Substance: KETOROLAC TROMETHAMINE
     Dosage: UNK
  5. TROSPIUM CHLORIDE [Concomitant]
     Active Substance: TROSPIUM CHLORIDE
     Indication: Abdominal pain
     Dosage: UNK

REACTIONS (18)
  - Loss of consciousness [Unknown]
  - Neurological examination abnormal [Unknown]
  - Dizziness [Unknown]
  - Thirst [Unknown]
  - Malaise [Unknown]
  - Tremor [Unknown]
  - Abdominal pain [Recovered/Resolved]
  - Hyperhidrosis [Unknown]
  - Confusional state [Unknown]
  - Balance disorder [Unknown]
  - Fatigue [Unknown]
  - Discoloured vomit [Unknown]
  - Dehydration [Unknown]
  - Coordination abnormal [Unknown]
  - Pollakiuria [Unknown]
  - Asthenia [Unknown]
  - Renal disorder [Unknown]
  - Gastrointestinal disorder [Unknown]
